FAERS Safety Report 12954277 (Version 6)
Quarter: 2018Q4

REPORT INFORMATION
  Report Type: Report from Study
  Country: JP (occurrence: JP)
  Receive Date: 20161118
  Receipt Date: 20181116
  Transmission Date: 20190204
  Serious: Yes (Life-Threatening, Hospitalization, Other)
  Sender: FDA-Public Use
  Company Number: JP-SHIRE-JP201616794AA

PATIENT
  Age: 8 Month
  Sex: Female
  Weight: 5.4 kg

DRUGS (33)
  1. CERCINE [Concomitant]
     Active Substance: DIAZEPAM
     Indication: GAUCHER^S DISEASE
     Dosage: 4 MG/DAY
     Route: 048
  2. CERCINE [Concomitant]
     Active Substance: DIAZEPAM
     Indication: SEIZURE
  3. MUCOSOLVAN [Concomitant]
     Active Substance: AMBROXOL HYDROCHLORIDE
     Indication: GAUCHER^S DISEASE
     Dosage: 18 MG/DAY
     Route: 048
  4. MIDAZOLAM [Concomitant]
     Active Substance: MIDAZOLAM HYDROCHLORIDE
     Indication: SEIZURE
     Dosage: 2-4 MG
     Route: 048
  5. VELAGLUCERASE ALFA [Suspect]
     Active Substance: VELAGLUCERASE ALFA
     Dosage: 60 IU/KG, 1X/2WKS
     Route: 041
     Dates: start: 20161011, end: 20170313
  6. PHENOBAL                           /00023201/ [Concomitant]
     Active Substance: PHENOBARBITAL
     Indication: MUSCLE SPASTICITY
  7. TRICLOFOS SODIUM [Concomitant]
     Active Substance: TRICLOFOS SODIUM
     Indication: PRODUCT USED FOR UNKNOWN INDICATION
     Dosage: 2-6 ML/DOSE
     Route: 048
     Dates: start: 20161005
  8. RIVOTRIL [Concomitant]
     Active Substance: CLONAZEPAM
     Indication: GAUCHER^S DISEASE
     Dosage: 0.3 MG/DAY
     Route: 048
     Dates: start: 20170208, end: 20170426
  9. MIYA-BM [Concomitant]
     Active Substance: CLOSTRIDIUM BUTYRICUM SPORES STRAIN M-55
     Indication: PROPHYLAXIS
     Dosage: 6 G/DAY
     Route: 048
     Dates: start: 20160808
  10. ATARAX [Concomitant]
     Active Substance: HYDROXYZINE HYDROCHLORIDE
     Indication: PROPHYLAXIS
     Dosage: 25MG, UNKNOWN
     Route: 042
     Dates: start: 20161011, end: 20170130
  11. TEGRETOL [Concomitant]
     Active Substance: CARBAMAZEPINE
     Dosage: 60 MG, UNK
     Route: 048
     Dates: start: 20170504, end: 20170511
  12. MIDAZOLAM [Concomitant]
     Active Substance: MIDAZOLAM HYDROCHLORIDE
     Indication: GAUCHER^S DISEASE
     Dosage: 2 MG/DOSE
     Route: 065
     Dates: start: 20160825
  13. NOBELBAR [Concomitant]
     Active Substance: PHENOBARBITAL SODIUM
     Indication: PRODUCT USED FOR UNKNOWN INDICATION
     Dosage: 20-120MG/DAY
     Route: 041
     Dates: start: 20160827, end: 20160831
  14. NONTHRON [Concomitant]
     Indication: PRODUCT USED FOR UNKNOWN INDICATION
     Dosage: 500 IU/DAY
     Route: 041
     Dates: start: 20160828, end: 20160828
  15. DANTRIUM [Concomitant]
     Active Substance: DANTROLENE SODIUM
     Indication: PRODUCT USED FOR UNKNOWN INDICATION
     Dosage: 7-12.5 MG/DAY
     Route: 048
     Dates: start: 20170120, end: 20170316
  16. TIZANIDINE. [Concomitant]
     Active Substance: TIZANIDINE
     Indication: GAUCHER^S DISEASE TYPE II
     Dosage: 1.5 MG, UNK
     Route: 048
     Dates: start: 20170609
  17. EPERISONE [Concomitant]
     Active Substance: EPERISONE
     Indication: GAUCHER^S DISEASE TYPE II
     Dosage: 75 MG/DAY
     Route: 048
     Dates: start: 20161209
  18. VELAGLUCERASE ALFA [Suspect]
     Active Substance: VELAGLUCERASE ALFA
     Indication: GAUCHER^S DISEASE
     Dosage: 60 IU/KG, 1X/2WKS
     Route: 041
     Dates: start: 20160528, end: 20160815
  19. VELAGLUCERASE ALFA [Suspect]
     Active Substance: VELAGLUCERASE ALFA
     Dosage: 40 IU/KG, 1X/2WKS
     Route: 041
     Dates: start: 20170327, end: 20170327
  20. CEFOTAXIME [Concomitant]
     Active Substance: CEFOTAXIME SODIUM
     Indication: PRODUCT USED FOR UNKNOWN INDICATION
     Dosage: 300 MG/DAY
     Route: 041
     Dates: start: 20160827, end: 20160831
  21. PHENOBAL                           /00023201/ [Concomitant]
     Active Substance: PHENOBARBITAL
     Indication: SEIZURE
     Dosage: 1.2 G/DAY
     Route: 048
  22. TRICLOFOS SODIUM [Concomitant]
     Active Substance: TRICLOFOS SODIUM
     Indication: MUSCLE SPASTICITY
  23. DANTRIUM [Concomitant]
     Active Substance: DANTROLENE SODIUM
     Indication: GAUCHER^S DISEASE
  24. CONSTAN                            /00384601/ [Concomitant]
     Indication: GAUCHER^S DISEASE TYPE II
     Dosage: 4 MG/DAY
     Route: 048
     Dates: start: 20170427, end: 20170518
  25. VELAGLUCERASE ALFA [Suspect]
     Active Substance: VELAGLUCERASE ALFA
     Dosage: 60 IU/KG, 1X/2WKS
     Dates: start: 20170410
  26. MIYA-BM [Concomitant]
     Active Substance: CLOSTRIDIUM BUTYRICUM SPORES STRAIN M-55
     Dosage: 0.45 G/DAY
     Route: 048
  27. RECOMODULIN [Concomitant]
     Active Substance: THROMBOMODULIN ALFA
     Indication: PRODUCT USED FOR UNKNOWN INDICATION
     Dosage: 2560 U
     Route: 041
     Dates: start: 20160827, end: 20160901
  28. NAFAMOSTAT [Concomitant]
     Active Substance: NAFAMOSTAT
     Indication: PRODUCT USED FOR UNKNOWN INDICATION
     Dosage: 1 MG
     Route: 041
     Dates: start: 20160828, end: 20160830
  29. CERCINE [Concomitant]
     Active Substance: DIAZEPAM
     Indication: PRODUCT USED FOR UNKNOWN INDICATION
     Dosage: 2-6 MG/DAY
     Route: 048
     Dates: start: 20161005
  30. PHENOBAL                           /00023201/ [Concomitant]
     Active Substance: PHENOBARBITAL
     Indication: PRODUCT USED FOR UNKNOWN INDICATION
     Dosage: 32.5-70 MG/DAY
     Route: 048
     Dates: start: 20161005
  31. TRICLOFOS SODIUM [Concomitant]
     Active Substance: TRICLOFOS SODIUM
     Indication: GAUCHER^S DISEASE
     Dosage: 8 ML/DAY
     Route: 048
  32. VALERIN                            /00228502/ [Concomitant]
     Active Substance: VALPROATE SODIUM
     Indication: GAUCHER^S DISEASE TYPE II
     Dosage: 200 MG/DAY
     Route: 048
     Dates: start: 20170511
  33. TEGRETOL [Concomitant]
     Active Substance: CARBAMAZEPINE
     Indication: PRODUCT USED FOR UNKNOWN INDICATION
     Dosage: 30-60 MG/DAY
     Route: 048
     Dates: start: 20170407

REACTIONS (6)
  - Respiratory failure [Recovered/Resolved with Sequelae]
  - Hepatic function abnormal [Not Recovered/Not Resolved]
  - Pyrexia [Not Recovered/Not Resolved]
  - Pneumonia [Recovered/Resolved]
  - Injection site swelling [Recovering/Resolving]
  - Gastroenteritis adenovirus [Recovered/Resolved]

NARRATIVE: CASE EVENT DATE: 20160827
